FAERS Safety Report 13897908 (Version 5)
Quarter: 2017Q4

REPORT INFORMATION
  Report Type: Report from Study
  Country: US (occurrence: US)
  Receive Date: 20170823
  Receipt Date: 20171020
  Transmission Date: 20180320
  Serious: Yes (Other)
  Sender: FDA-Public Use
  Company Number: US-JAZZ-2017-US-010735

PATIENT
  Sex: Female

DRUGS (4)
  1. KLONOPIN [Concomitant]
     Active Substance: CLONAZEPAM
     Indication: PRODUCT USED FOR UNKNOWN INDICATION
  2. XYREM [Suspect]
     Active Substance: SODIUM OXYBATE
     Indication: NARCOLEPSY
     Dosage: 2.25 G, BID
     Route: 048
     Dates: start: 201705, end: 201705
  3. XYREM [Suspect]
     Active Substance: SODIUM OXYBATE
     Indication: CATAPLEXY
     Dosage: DOSE ADJUSTMENT
     Route: 048
     Dates: start: 201705, end: 2017
  4. XYREM [Suspect]
     Active Substance: SODIUM OXYBATE
     Dosage: 4.5 G, BID
     Route: 048
     Dates: start: 2017

REACTIONS (25)
  - Weight decreased [Unknown]
  - Nausea [Unknown]
  - Nephrolithiasis [Unknown]
  - Hepatic cyst [Not Recovered/Not Resolved]
  - Hypotension [Unknown]
  - Helicobacter infection [Unknown]
  - Anaemia [Unknown]
  - Blood potassium decreased [Not Recovered/Not Resolved]
  - Dermatitis contact [Unknown]
  - Depression [Recovering/Resolving]
  - Umbilical hernia [Unknown]
  - Cystitis [Unknown]
  - Pleural disorder [Unknown]
  - Hangover [Unknown]
  - Vomiting [Unknown]
  - Product preparation error [Unknown]
  - Metabolic disorder [Unknown]
  - Condition aggravated [Not Recovered/Not Resolved]
  - Dyspnoea [Unknown]
  - Hypertension [Recovered/Resolved]
  - Lipoma [Unknown]
  - Gastrooesophageal reflux disease [Unknown]
  - Mitral valve incompetence [Unknown]
  - Congenital cystic kidney disease [Not Recovered/Not Resolved]
  - Gastric ulcer [Unknown]
